FAERS Safety Report 17717727 (Version 1)
Quarter: 2020Q2

REPORT INFORMATION
  Report Type: Spontaneous
  Country: US (occurrence: US)
  Receive Date: 20200427
  Receipt Date: 20200427
  Transmission Date: 20200714
  Serious: No
  Sender: FDA-Public Use
  Company Number: None

PATIENT
  Age: 76 Year
  Sex: Female
  Weight: 49.5 kg

DRUGS (6)
  1. HALOPERIDOL DEC INJECTION [Concomitant]
  2. HALOPERIDOL 2 MG/ML SOLUTION (CONCENTRATE) [Suspect]
     Active Substance: HALOPERIDOL
     Indication: AUTONOMIC NERVOUS SYSTEM IMBALANCE
     Dosage: ?          QUANTITY:1 TEASPOON(S);?
     Route: 048
     Dates: start: 20191129, end: 20200427
  3. TRIHEXYPHENIDYL [Concomitant]
     Active Substance: TRIHEXYPHENIDYL
  4. POTASSIUM CHLORIDE 20MEQ [Concomitant]
     Active Substance: POTASSIUM CHLORIDE
  5. NIFEDIPINE. [Concomitant]
     Active Substance: NIFEDIPINE
  6. LOSARTAN. [Concomitant]
     Active Substance: LOSARTAN

REACTIONS (7)
  - Musculoskeletal stiffness [None]
  - Balance disorder [None]
  - Dizziness [None]
  - Neck pain [None]
  - Fluid retention [None]
  - Nocturia [None]
  - Gait disturbance [None]

NARRATIVE: CASE EVENT DATE: 20191129
